FAERS Safety Report 7860308-4 (Version None)
Quarter: 2011Q4

REPORT INFORMATION
  Report Type: 
  Country: None (occurrence: None)
  Receive Date: 20111027
  Receipt Date: 20111012
  Transmission Date: 20120403
  Serious: Yes (Hospitalization)
  Sender: FDA-Public Use
  Company Number: US-WATSON-2011-16478

PATIENT
  Age: 46 Year
  Sex: Male
  Weight: 107.9 kg

DRUGS (6)
  1. METFORMIN HCL [Concomitant]
     Indication: PRODUCT USED FOR UNKNOWN INDICATION
     Dosage: UNK
     Route: 065
  2. NORCO [Concomitant]
     Indication: PAIN
     Dosage: UNK
     Route: 065
  3. FLEXERIL [Concomitant]
     Indication: PAIN
     Dosage: UNK
     Route: 065
  4. UNKNOWN ANTIBIOTIC [Concomitant]
     Indication: PROPHYLAXIS
     Dosage: UNK
     Route: 042
  5. VICODIN [Concomitant]
     Indication: PRODUCT USED FOR UNKNOWN INDICATION
     Dosage: UNK
     Route: 065
  6. RAPAFLO [Suspect]
     Indication: PROSTATITIS
     Dosage: 8MG, DAILY
     Route: 048
     Dates: start: 20110415, end: 20110517

REACTIONS (1)
  - TACHYCARDIA [None]
